FAERS Safety Report 9031860 (Version 2)
Quarter: 2013Q2

REPORT INFORMATION
  Report Type: Spontaneous
  Country: US (occurrence: US)
  Receive Date: 20130124
  Receipt Date: 20130416
  Transmission Date: 20140414
  Serious: Yes (Hospitalization)
  Sender: FDA-Public Use
  Company Number: US-ELI_LILLY_AND_COMPANY-US201301004230

PATIENT
  Age: 51 Year
  Sex: Male
  Weight: 82.54 kg

DRUGS (6)
  1. HUMALOG 50% LISPRO, 50% NPL [Suspect]
     Indication: DIABETES MELLITUS
     Dosage: 80 U, BID
     Dates: start: 201006
  2. HUMALOG 50% LISPRO, 50% NPL [Suspect]
     Dosage: 50 U, QD
     Dates: start: 201006
  3. HTZ [Concomitant]
     Indication: BLOOD PRESSURE INCREASED
  4. LASIX [Concomitant]
     Indication: BLOOD PRESSURE INCREASED
  5. ATENOLOL [Concomitant]
     Indication: BLOOD PRESSURE INCREASED
  6. CARDIZEM                           /00489701/ [Concomitant]
     Indication: BLOOD PRESSURE INCREASED

REACTIONS (7)
  - Haemorrhage [Recovering/Resolving]
  - Gastritis [Recovering/Resolving]
  - Angiodysplasia [Unknown]
  - Fungal infection [Recovering/Resolving]
  - Amnesia [Recovering/Resolving]
  - Sleep disorder [Not Recovered/Not Resolved]
  - Nervousness [Not Recovered/Not Resolved]
